FAERS Safety Report 6828660-6 (Version None)
Quarter: 2010Q3

REPORT INFORMATION
  Report Type: 
  Country: None (occurrence: None)
  Receive Date: 20100709
  Receipt Date: 20070215
  Transmission Date: 20110219
  Serious: No
  Sender: FDA-Public Use
  Company Number: US-PFIZER INC-2007009805

PATIENT
  Sex: Female
  Weight: 68.04 kg

DRUGS (10)
  1. CHANTIX [Suspect]
     Indication: SMOKING CESSATION THERAPY
     Dates: start: 20070122
  2. COZAAR [Concomitant]
  3. NEXIUM [Concomitant]
     Indication: GASTROOESOPHAGEAL REFLUX DISEASE
  4. SPIRONOLACTONE [Concomitant]
  5. MACRODANTIN [Concomitant]
  6. TRICOR [Concomitant]
  7. IMDUR [Concomitant]
  8. VITAMINS [Concomitant]
  9. EVISTA [Concomitant]
  10. ANTINEOPLASTIC AGENTS [Concomitant]

REACTIONS (4)
  - ABDOMINAL DISTENSION [None]
  - CONSTIPATION [None]
  - DYSPEPSIA [None]
  - NAUSEA [None]
